FAERS Safety Report 11043079 (Version 2)
Quarter: 2015Q4

REPORT INFORMATION
  Report Type: Report from Study
  Country: FR (occurrence: FR)
  Receive Date: 20150417
  Receipt Date: 20151103
  Transmission Date: 20160304
  Serious: Yes (Death)
  Sender: FDA-Public Use
  Company Number: FR-ROCHE-1564955

PATIENT
  Age: 72 Year
  Sex: Male

DRUGS (11)
  1. CORDARONE [Concomitant]
     Active Substance: AMIODARONE HYDROCHLORIDE
     Route: 048
     Dates: start: 2002
  2. PREDNISONE. [Concomitant]
     Active Substance: PREDNISONE
  3. SINTROM [Concomitant]
     Active Substance: ACENOCOUMAROL
     Route: 048
     Dates: start: 2002, end: 20040321
  4. CHLORAMBUCIL [Suspect]
     Active Substance: CHLORAMBUCIL
     Indication: EXTRANODAL MARGINAL ZONE B-CELL LYMPHOMA (MALT TYPE)
     Dosage: DATE OF LAST DOSE PRIOR TO ADVERSE EVENT: 23/MAR/2005
     Route: 048
     Dates: start: 20041021, end: 20050323
  5. PURINETHOL [Concomitant]
     Active Substance: MERCAPTOPURINE
     Dosage: 1 CP/J
     Route: 065
     Dates: start: 20051024
  6. CYCLOPHOSPHAMIDE. [Concomitant]
     Active Substance: CYCLOPHOSPHAMIDE
  7. VINCRISTINE [Concomitant]
     Active Substance: VINCRISTINE
  8. METHOTREXATE [Concomitant]
     Active Substance: METHOTREXATE
     Dosage: 4 CP SEMAINE
     Route: 065
     Dates: start: 20051024
  9. RITUXIMAB [Suspect]
     Active Substance: RITUXIMAB
     Indication: EXTRANODAL MARGINAL ZONE B-CELL LYMPHOMA (MALT TYPE)
     Dosage: DATE OF LAST DOSE PRIOR TO ADVERSE EVENT: 10/MAR/2005
     Route: 042
     Dates: start: 20041021, end: 20050310
  10. PRAXILENE [Concomitant]
     Active Substance: NAFRONYL
     Route: 048
     Dates: start: 2002
  11. DOXORUBICIN [Concomitant]
     Active Substance: DOXORUBICIN

REACTIONS (1)
  - Acute myeloid leukaemia [Fatal]

NARRATIVE: CASE EVENT DATE: 20050923
